FAERS Safety Report 25899256 (Version 2)
Quarter: 2025Q4

REPORT INFORMATION
  Report Type: Spontaneous
  Country: JP (occurrence: JP)
  Receive Date: 20251009
  Receipt Date: 20251020
  Transmission Date: 20260117
  Serious: Yes (Death, Hospitalization, Other)
  Sender: ROCHE
  Company Number: JP-CHUGAI-2025031334

PATIENT
  Age: 63 Year
  Sex: Female

DRUGS (3)
  1. PERJETA [Suspect]
     Active Substance: PERTUZUMAB
     Indication: HER2 positive breast cancer
     Dosage: UNK
     Route: 042
  2. HERCEPTIN [Suspect]
     Active Substance: TRASTUZUMAB
     Indication: HER2 positive breast cancer
     Dosage: UNK
     Route: 042
  3. DOCETAXEL [Concomitant]
     Active Substance: DOCETAXEL
     Indication: HER2 positive breast cancer
     Dosage: UNK
     Route: 042

REACTIONS (23)
  - General physical health deterioration [Fatal]
  - Cytokine storm [Fatal]
  - Tumour lysis syndrome [Fatal]
  - Dehydration [Unknown]
  - Escherichia sepsis [Unknown]
  - Septic shock [Unknown]
  - Necrotising fasciitis [Unknown]
  - Disseminated intravascular coagulation [Unknown]
  - Wheezing [Unknown]
  - Laryngeal oedema [Unknown]
  - Abscess limb [Unknown]
  - Oxygen saturation decreased [Unknown]
  - Pleural effusion [Unknown]
  - Oral mucosa erosion [Unknown]
  - Mouth ulceration [Unknown]
  - Neutrophil count decreased [Recovering/Resolving]
  - Ascites [Unknown]
  - Decreased appetite [Unknown]
  - Malaise [Unknown]
  - Nausea [Unknown]
  - Pain [Unknown]
  - Cellulitis [Unknown]
  - Diarrhoea [Recovered/Resolved]
